FAERS Safety Report 7242964-7 (Version None)
Quarter: 2011Q1

REPORT INFORMATION
  Report Type: 
  Country: None (occurrence: None)
  Receive Date: 20110125
  Receipt Date: 20110115
  Transmission Date: 20110831
  Serious: Yes (Hospitalization)
  Sender: FDA-Public Use
  Company Number: US-JNJFOC-20110104811

PATIENT
  Age: 3 Year
  Sex: Female
  Weight: 13.61 kg

DRUGS (5)
  1. CHILDREN'S MOTRIN [Suspect]
     Indication: VOMITING
     Route: 048
  2. CHILDREN'S TYLENOL SUSPENSION [Suspect]
     Indication: VOMITING
     Route: 048
  3. CHILDREN'S MOTRIN [Suspect]
     Indication: INFLUENZA
     Route: 048
  4. CHILDREN'S TYLENOL SUSPENSION [Suspect]
     Indication: INFLUENZA
     Route: 048
  5. ANTIBIOTICS [Concomitant]

REACTIONS (4)
  - URINARY TRACT INFECTION [None]
  - BACTERIAL INFECTION [None]
  - WEIGHT DECREASED [None]
  - PRODUCT QUALITY ISSUE [None]
